FAERS Safety Report 12305209 (Version 1)
Quarter: 2016Q2

REPORT INFORMATION
  Report Type: Spontaneous
  Country: US (occurrence: None)
  Receive Date: 20160425
  Receipt Date: 20160425
  Transmission Date: 20160815
  Serious: Yes (Other)
  Sender: FDA-Public Use
  Company Number: None

PATIENT
  Age: 69 Year
  Sex: Female
  Weight: 127.01 kg

DRUGS (1)
  1. BEXAROTENE 75 MG MYLAN [Suspect]
     Active Substance: BEXAROTENE
     Indication: MYCOSIS FUNGOIDES
     Route: 048
     Dates: start: 20151020, end: 20160422

REACTIONS (2)
  - Dizziness [None]
  - Skin exfoliation [None]

NARRATIVE: CASE EVENT DATE: 20160422
